FAERS Safety Report 5599694-7 (Version None)
Quarter: 2008Q1

REPORT INFORMATION
  Report Type: 
  Country: None (occurrence: None)
  Receive Date: 20080123
  Receipt Date: 20080114
  Transmission Date: 20080703
  Serious: Yes (Hospitalization)
  Sender: FDA-Public Use
  Company Number: FR-BRISTOL-MYERS SQUIBB COMPANY-14047237

PATIENT
  Age: 33 Year
  Sex: Female

DRUGS (12)
  1. ENDOXAN [Suspect]
     Indication: T-CELL LYMPHOMA STAGE IV
     Route: 042
     Dates: start: 20070910
  2. UROMITEXAN [Suspect]
     Indication: T-CELL LYMPHOMA STAGE IV
     Dates: start: 20070910
  3. METHOTREXATE [Suspect]
     Indication: T-CELL LYMPHOMA STAGE IV
     Dosage: 15 MG ON DAY-5
     Route: 037
     Dates: start: 20070924
  4. VINDESINE [Suspect]
     Indication: T-CELL LYMPHOMA STAGE IV
     Dates: start: 20070910
  5. ADRIAMYCIN PFS [Suspect]
     Indication: T-CELL LYMPHOMA STAGE IV
     Route: 042
     Dates: start: 20070910
  6. ARANESP [Concomitant]
     Dates: start: 20071012
  7. VALACYCLOVIR [Concomitant]
     Dates: start: 20071012
  8. BACTRIM [Concomitant]
     Dates: start: 20071012, end: 20071029
  9. SPECIAFOLDINE [Concomitant]
     Dates: start: 20071012
  10. LENOGRASTIM [Concomitant]
  11. BLEOMYCIN [Concomitant]
     Dosage: DAY-1 AND DAY-5, 10 MG
     Dates: start: 20070924
  12. SOLU-MEDROL [Concomitant]
     Dosage: 100 MG ON DAY-1 AND DAY-5
     Dates: start: 20070924

REACTIONS (6)
  - DERMATITIS PSORIASIFORM [None]
  - DRUG ERUPTION [None]
  - MALIGNANT NEOPLASM PROGRESSION [None]
  - PANCYTOPENIA [None]
  - PNEUMONIA CHLAMYDIAL [None]
  - PYREXIA [None]
